FAERS Safety Report 9057163 (Version 1)
Quarter: 2013Q1

REPORT INFORMATION
  Report Type: Spontaneous
  Country: US (occurrence: US)
  Receive Date: 20130131
  Receipt Date: 20130131
  Transmission Date: 20140127
  Serious: Yes (Other)
  Sender: FDA-Public Use
  Company Number: US-PFIZER INC-2013037251

PATIENT
  Age: 67 Year
  Sex: Male
  Weight: 95.24 kg

DRUGS (3)
  1. EFFEXOR XR [Suspect]
     Dosage: 150 MG, 1X/DAY
     Route: 048
  2. VENLAFAXINE [Suspect]
     Dosage: 150 MG, 1X/DAY
     Dates: start: 201212, end: 201301
  3. METFORMIN [Concomitant]
     Indication: DIABETES MELLITUS
     Dosage: UNK
     Dates: start: 2000

REACTIONS (4)
  - Depression [Unknown]
  - Negative thoughts [Unknown]
  - Crying [Unknown]
  - Drug ineffective [Unknown]
